FAERS Safety Report 9348624 (Version 1)
Quarter: 2013Q2

REPORT INFORMATION
  Report Type: Spontaneous
  Country: GB (occurrence: GB)
  Receive Date: 20130614
  Receipt Date: 20130614
  Transmission Date: 20140414
  Serious: Yes (Other)
  Sender: FDA-Public Use
  Company Number: GB-ELI_LILLY_AND_COMPANY-GB201306000665

PATIENT
  Age: 39 Year
  Sex: Female
  Weight: 70.3 kg

DRUGS (3)
  1. YENTREVE [Suspect]
     Indication: STRESS URINARY INCONTINENCE
     Dosage: 20 MG, BID
     Route: 048
  2. BEROCCA [Concomitant]
  3. VITAMIN D [Concomitant]

REACTIONS (5)
  - Retinal migraine [Unknown]
  - Constipation [Unknown]
  - Dry eye [Unknown]
  - Oligomenorrhoea [Unknown]
  - Weight increased [Unknown]
